FAERS Safety Report 14277402 (Version 14)
Quarter: 2019Q4

REPORT INFORMATION
  Report Type: Report from Study
  Country: DE (occurrence: DE)
  Receive Date: 20171212
  Receipt Date: 20191220
  Transmission Date: 20200122
  Serious: Yes (Hospitalization)
  Sender: FDA-Public Use
  Company Number: DE-ROCHE-2031117

PATIENT
  Age: 54 Year
  Sex: Male
  Weight: 70 kg

DRUGS (38)
  1. VEMURAFENIB. [Suspect]
     Active Substance: VEMURAFENIB
     Indication: MALIGNANT MELANOMA
     Dosage: DATE OF MOST RECENT DOSE 4 TABLETS PRIOR TO EVENT CIRCULATORY SHOCK ONSET : 20/NOV/2017?DATE OF MOST
     Route: 048
     Dates: start: 20171011
  2. ARCOXIA [Concomitant]
     Active Substance: ETORICOXIB
     Indication: ARTHRALGIA
     Route: 048
     Dates: start: 20180201
  3. ARCOXIA [Concomitant]
     Active Substance: ETORICOXIB
     Indication: ARTHRALGIA
     Route: 065
     Dates: start: 20190412
  4. RANITIC [Concomitant]
     Active Substance: RANITIDINE HYDROCHLORIDE
     Indication: GASTRIC ULCER
     Route: 065
     Dates: start: 20180216, end: 20180301
  5. MIRVASO [Concomitant]
     Active Substance: BRIMONIDINE TARTRATE
     Indication: ROSACEA
     Route: 065
     Dates: start: 20190227
  6. ATEZOLIZUMAB. [Suspect]
     Active Substance: ATEZOLIZUMAB
     Indication: MALIGNANT MELANOMA
     Dosage: DATE OF MOST RECENT DOSE PRIOR TO EVENT REMOVAL OF TWO FILAMENTS AFTER RUPTURE OF THE SCAPHOLUNATE L
     Route: 042
     Dates: start: 20171108
  7. SOTALOL. [Concomitant]
     Active Substance: SOTALOL
     Indication: LEFT VENTRICULAR DYSFUNCTION
     Route: 065
     Dates: start: 20190606
  8. IBUPROFEN. [Concomitant]
     Active Substance: IBUPROFEN
     Indication: MUSCULOSKELETAL PAIN
  9. ZYRTEC R [Concomitant]
     Active Substance: CETIRIZINE HYDROCHLORIDE
     Route: 065
     Dates: start: 20180326
  10. HYLO [Concomitant]
     Indication: FOREIGN BODY SENSATION IN EYES
     Route: 065
     Dates: start: 20180619
  11. BEPANTHENE [Concomitant]
     Active Substance: DEXPANTHENOL
     Indication: NASAL DRYNESS
     Route: 065
     Dates: start: 20190505
  12. ARCOXIA [Concomitant]
     Active Substance: ETORICOXIB
     Indication: ARTHRALGIA
     Route: 065
     Dates: start: 20171221, end: 20180201
  13. CELEBREX [Concomitant]
     Active Substance: CELECOXIB
     Indication: PAIN IN EXTREMITY
     Route: 065
     Dates: start: 20180216, end: 20180221
  14. XIMOVAN [Concomitant]
     Active Substance: ZOPICLONE
     Indication: INSOMNIA
     Route: 065
     Dates: start: 20171124, end: 20171126
  15. DICLOFENAC [Concomitant]
     Active Substance: DICLOFENAC
     Indication: ARTHRALGIA
     Route: 065
     Dates: start: 20180214
  16. CALCIUM D3 [Concomitant]
     Active Substance: CALCIUM\CHOLECALCIFEROL
     Indication: OSTEOPOROSIS
     Route: 065
     Dates: start: 20180216, end: 20180301
  17. ZADITEN [Concomitant]
     Active Substance: KETOTIFEN FUMARATE
     Indication: UVEITIS
     Route: 061
     Dates: start: 20191106
  18. CELEBREX [Concomitant]
     Active Substance: CELECOXIB
     Indication: ARTHRALGIA
     Route: 048
     Dates: start: 20180201, end: 20180214
  19. OPTIDERM F [Concomitant]
     Indication: DERMATITIS ACNEIFORM
     Route: 065
     Dates: start: 20180214
  20. UNACID [AMPICILLIN SODIUM;SULBACTAM SODIUM] [Concomitant]
     Active Substance: AMPICILLIN SODIUM\SULBACTAM SODIUM
     Indication: PNEUMONIA
     Route: 065
     Dates: start: 20180216, end: 20180223
  21. EUBIOL [SACCHAROMYCES CEREVISIAE] [Concomitant]
     Indication: PULPITIS DENTAL
     Route: 065
     Dates: start: 20180615
  22. DEXPANTHENOL. [Concomitant]
     Active Substance: DEXPANTHENOL
     Indication: FOREIGN BODY SENSATION IN EYES
     Route: 065
     Dates: start: 20180605
  23. TAVOR (LORAZEPAM) [Concomitant]
     Active Substance: LORAZEPAM
     Indication: SLEEP DISORDER
     Route: 048
     Dates: start: 20160101
  24. IBUPROFEN. [Concomitant]
     Active Substance: IBUPROFEN
     Indication: ARTHRALGIA
     Route: 065
     Dates: start: 20180214
  25. ARCOXIA [Concomitant]
     Active Substance: ETORICOXIB
     Indication: PAIN IN EXTREMITY
  26. ALLOPURINOL. [Concomitant]
     Active Substance: ALLOPURINOL
     Indication: BLOOD URIC ACID INCREASED
     Route: 048
     Dates: start: 20180511
  27. ZOMETA [Concomitant]
     Active Substance: ZOLEDRONIC ACID
     Route: 065
     Dates: start: 20180925
  28. CERTOPARIN SODIUM [Concomitant]
     Active Substance: CERTOPARIN SODIUM
     Indication: THROMBOSIS
     Route: 065
     Dates: start: 20171122
  29. IBUPROFEN. [Concomitant]
     Active Substance: IBUPROFEN
     Indication: ARTHRALGIA
     Route: 065
     Dates: start: 20171213, end: 20171220
  30. DUOGALEN [Concomitant]
     Indication: DERMATITIS ACNEIFORM
     Route: 065
     Dates: start: 20180214
  31. DUOGALEN [Concomitant]
     Indication: SUNBURN
     Route: 065
     Dates: start: 20180410, end: 20180411
  32. CLINDAMYCIN. [Concomitant]
     Active Substance: CLINDAMYCIN
     Indication: PULPITIS DENTAL
     Route: 065
     Dates: start: 20180615, end: 20180624
  33. ARTELAC [HYPROMELLOSE] [Concomitant]
     Active Substance: HYPROMELLOSES
     Indication: UVEITIS
     Route: 065
     Dates: start: 20191106
  34. COBIMETINIB. [Suspect]
     Active Substance: COBIMETINIB
     Indication: MALIGNANT MELANOMA
     Dosage: DATE OF MOST RECENT DOSE 60 MG PRIOR TO STATUS POST RUPTURE OF THE SCAPHOLUNATE BAND ONSET: 21/NOV/2
     Route: 048
     Dates: start: 20171011
  35. OMEPRAZOL [OMEPRAZOLE] [Concomitant]
     Active Substance: OMEPRAZOLE
     Indication: GASTROOESOPHAGEAL REFLUX DISEASE
     Route: 048
     Dates: start: 20070101
  36. ATORVASTATIN [Concomitant]
     Active Substance: ATORVASTATIN
     Route: 048
     Dates: start: 20180523
  37. MUCOSOLVAN [Concomitant]
     Active Substance: AMBROXOL HYDROCHLORIDE
     Indication: NASOPHARYNGITIS
     Route: 065
     Dates: start: 20181004, end: 20181020
  38. PREDNISOLONE. [Concomitant]
     Active Substance: PREDNISOLONE
     Indication: PAIN
     Route: 048
     Dates: start: 20190417

REACTIONS (4)
  - Infusion related reaction [Recovered/Resolved]
  - Ligament rupture [Recovered/Resolved]
  - Blood creatine phosphokinase increased [Recovered/Resolved]
  - Arrhythmia [Not Recovered/Not Resolved]

NARRATIVE: CASE EVENT DATE: 20171122
